FAERS Safety Report 10365618 (Version 2)
Quarter: 2014Q3

REPORT INFORMATION
  Report Type: Spontaneous
  Country: FR (occurrence: FR)
  Receive Date: 20140806
  Receipt Date: 20140806
  Transmission Date: 20150326
  Serious: Yes (Life-Threatening, Hospitalization)
  Sender: FDA-Public Use
  Company Number: FR-PFIZER INC-2014104708

PATIENT
  Age: 83 Year
  Sex: Male
  Weight: 62 kg

DRUGS (3)
  1. HEMIGOXINE [Concomitant]
     Active Substance: DIGOXIN
     Indication: ATRIAL FIBRILLATION
     Dosage: 0.125 MG, 1X/DAY
     Route: 048
     Dates: end: 20140406
  2. BISOPROLOL [Concomitant]
     Active Substance: BISOPROLOL
     Indication: ATRIAL FIBRILLATION
     Dosage: 10 MG, 1X/DAY
     Route: 048
     Dates: end: 20140406
  3. XALKORI [Suspect]
     Active Substance: CRIZOTINIB
     Indication: LUNG ADENOCARCINOMA STAGE IV
     Dosage: 250 MG, 2X/DAY
     Route: 048
     Dates: start: 20140319, end: 20140407

REACTIONS (3)
  - Bradycardia [Recovered/Resolved]
  - Atrial fibrillation [Recovered/Resolved]
  - Electrocardiogram QT prolonged [Recovered/Resolved]

NARRATIVE: CASE EVENT DATE: 20140405
